FAERS Safety Report 23150003 (Version 1)
Quarter: 2023Q4

REPORT INFORMATION
  Report Type: Spontaneous
  Country: US (occurrence: US)
  Receive Date: 20231106
  Receipt Date: 20231106
  Transmission Date: 20240109
  Serious: Yes (Other)
  Sender: FDA-Public Use
  Company Number: US-PFIZER INC-202300352331

PATIENT
  Weight: 46.712 kg

DRUGS (3)
  1. PRECEDEX [Suspect]
     Active Substance: DEXMEDETOMIDINE HYDROCHLORIDE
     Dosage: 1 MG/KG (FOR 5 DAYS (24HRS/5DAYS)
  2. XANAX [Suspect]
     Active Substance: ALPRAZOLAM
     Indication: Sedative therapy
     Dosage: 50 G, 1X/DAY
  3. DIAZEPAM [Suspect]
     Active Substance: DIAZEPAM
     Indication: Sedative therapy
     Dosage: 50 G, 1X/DAY

REACTIONS (4)
  - Cardiac arrest [Unknown]
  - Respiratory failure [Unknown]
  - Retrograde amnesia [Unknown]
  - Overdose [Unknown]
